FAERS Safety Report 17377225 (Version 1)
Quarter: 2020Q1

REPORT INFORMATION
  Report Type: Spontaneous
  Country: US (occurrence: US)
  Receive Date: 20200121
  Receipt Date: 20200121
  Transmission Date: 20200409
  Serious: Yes (Life-Threatening, Hospitalization)
  Sender: FDA-Public Use
  Company Number: None

PATIENT
  Age: 65 Year
  Sex: Male
  Weight: 60 kg

DRUGS (1)
  1. CLOPIDOGREL (CLOPIDOGREL BISULFATE 75MG TAB) [Suspect]
     Active Substance: CLOPIDOGREL BISULFATE
     Indication: VASCULAR OPERATION
     Route: 048
     Dates: start: 20191215, end: 20191217

REACTIONS (2)
  - Thrombocytopenia [None]
  - Haemorrhage [None]

NARRATIVE: CASE EVENT DATE: 20191217
